FAERS Safety Report 25013032 (Version 1)
Quarter: 2025Q1

REPORT INFORMATION
  Report Type: Spontaneous
  Country: US (occurrence: US)
  Receive Date: 20250226
  Receipt Date: 20250226
  Transmission Date: 20250408
  Serious: Yes (Hospitalization, Other)
  Sender: Kenvue
  Company Number: None

PATIENT
  Age: 27 Year
  Sex: Female

DRUGS (1)
  1. ACETAMINOPHEN [Suspect]
     Active Substance: ACETAMINOPHEN
     Indication: Migraine
     Route: 048

REACTIONS (7)
  - Tachycardia [Unknown]
  - Dry mouth [Unknown]
  - Abdominal pain upper [Unknown]
  - Vomiting [Unknown]
  - Toxicity to various agents [Unknown]
  - Liver function test abnormal [Unknown]
  - Incorrect dose administered [Unknown]
